FAERS Safety Report 24292152 (Version 1)
Quarter: 2024Q3

REPORT INFORMATION
  Report Type: Spontaneous
  Country: US (occurrence: None)
  Receive Date: 20240906
  Receipt Date: 20240906
  Transmission Date: 20241017
  Serious: No
  Sender: DOMPE FARMACEUTICI
  Company Number: US-FARMAPROD-202307-2166

PATIENT
  Sex: Male
  Weight: 82.1 kg

DRUGS (13)
  1. OXERVATE [Suspect]
     Active Substance: CENEGERMIN-BKBJ
     Indication: Neurotrophic keratopathy
     Route: 047
     Dates: start: 20230710
  2. CARVEDILOL [Concomitant]
     Active Substance: CARVEDILOL
  3. MUPIROCIN [Concomitant]
     Active Substance: MUPIROCIN
  4. FUROSEMIDE [Concomitant]
     Active Substance: FUROSEMIDE
  5. LOSARTAN POTASSIUM [Concomitant]
     Active Substance: LOSARTAN POTASSIUM
  6. SELENIUM SULFIDE [Concomitant]
     Active Substance: SELENIUM SULFIDE
  7. HYDRALAZINE HCL [Concomitant]
     Active Substance: HYDRALAZINE HYDROCHLORIDE
  8. KETOROLAC TROMETHAMINE [Concomitant]
     Active Substance: KETOROLAC TROMETHAMINE
  9. HUMALOG [Concomitant]
     Active Substance: INSULIN LISPRO
  10. OMEPRAZOLE [Concomitant]
     Active Substance: OMEPRAZOLE
  11. LEVOTHYROXINE SODIUM [Concomitant]
     Active Substance: LEVOTHYROXINE SODIUM
  12. KETOCONAZOLE [Concomitant]
     Active Substance: KETOCONAZOLE
  13. LANTUS SOLOSTAR [Concomitant]
     Active Substance: INSULIN GLARGINE
     Dosage: INSULIN PEN

REACTIONS (2)
  - Intentional product misuse [Unknown]
  - Product administration error [Unknown]
